FAERS Safety Report 5889942-8 (Version None)
Quarter: 2008Q3

REPORT INFORMATION
  Report Type: 
  Country: None (occurrence: None)
  Receive Date: 20080919
  Receipt Date: 20080916
  Transmission Date: 20090109
  Serious: Yes (Life-Threatening, Hospitalization, Other)
  Sender: FDA-Public Use
  Company Number: PHBS2008BE05730

PATIENT
  Age: 56 Year
  Sex: Female
  Weight: 122 kg

DRUGS (5)
  1. VALSARTAN AND HYDROCHLOROTHIAZIDE [Suspect]
     Indication: HYPERTENSION
     Dosage: 12.5MG/ 160MG
  2. PIROXICAM [Interacting]
     Indication: TOOTH EXTRACTION
     Dosage: 20 MG, QD
  3. PIROXICAM [Interacting]
     Indication: PAIN
  4. METFORMIN HCL [Concomitant]
     Indication: TYPE 2 DIABETES MELLITUS
     Dosage: 850 MG, TID
  5. FUROSEMIDE [Concomitant]
     Indication: HYPERTENSION
     Dosage: 40 MG, QD

REACTIONS (18)
  - ANURIA [None]
  - BLOOD BICARBONATE DECREASED [None]
  - BLOOD PRESSURE SYSTOLIC DECREASED [None]
  - BODY TEMPERATURE DECREASED [None]
  - CARDIAC FAILURE [None]
  - COGNITIVE DISORDER [None]
  - DEPRESSED LEVEL OF CONSCIOUSNESS [None]
  - DRUG INTERACTION [None]
  - ENDOTRACHEAL INTUBATION [None]
  - HAEMODIALYSIS [None]
  - HYPERGLYCAEMIA [None]
  - KUSSMAUL RESPIRATION [None]
  - LACTIC ACIDOSIS [None]
  - MUSCULAR WEAKNESS [None]
  - RENAL FAILURE [None]
  - SHOCK [None]
  - SOMNOLENCE [None]
  - VOMITING [None]
